FAERS Safety Report 6409924-7 (Version None)
Quarter: 2009Q4

REPORT INFORMATION
  Report Type: 
  Country: None (occurrence: None)
  Receive Date: 20091021
  Receipt Date: 20091021
  Transmission Date: 20100525
  Serious: No
  Sender: FDA-Public Use
  Company Number: None

PATIENT
  Age: 49 Year
  Sex: Male

DRUGS (2)
  1. LITHIUM CARBONATE [Suspect]
     Indication: SCHIZOAFFECTIVE DISORDER
     Dosage: 300MG BID PO
     Route: 048
     Dates: start: 20091009, end: 20091015
  2. CLOZAPINE [Suspect]
     Dosage: 25MG BID PO
     Route: 048
     Dates: start: 20091011, end: 20091015

REACTIONS (5)
  - DEPRESSION [None]
  - HYPOPHAGIA [None]
  - LEUKOPENIA [None]
  - NEUROLEPTIC MALIGNANT SYNDROME [None]
  - SOCIAL AVOIDANT BEHAVIOUR [None]
